FAERS Safety Report 13711004 (Version 1)
Quarter: 2017Q2

REPORT INFORMATION
  Report Type: Spontaneous
  Country: US (occurrence: US)
  Receive Date: 20170630
  Receipt Date: 20170630
  Transmission Date: 20170830
  Serious: Yes (Hospitalization)
  Sender: FDA-Public Use
  Company Number: None

PATIENT
  Age: 69 Year
  Sex: Male

DRUGS (1)
  1. GADOBUTROL [Suspect]
     Active Substance: GADOBUTROL
     Indication: CARDIAC OPERATION
     Route: 042
     Dates: start: 20160625, end: 20160625

REACTIONS (7)
  - Blood pressure decreased [None]
  - Dyspnoea [None]
  - Lactic acidosis [None]
  - Anaphylactic reaction [None]
  - Flushing [None]
  - Abdominal pain [None]
  - Swelling face [None]

NARRATIVE: CASE EVENT DATE: 20160625
